FAERS Safety Report 6267957-8 (Version None)
Quarter: 2009Q3

REPORT INFORMATION
  Report Type: 
  Country: None (occurrence: None)
  Receive Date: 20090713
  Receipt Date: 20090707
  Transmission Date: 20100115
  Serious: Yes (Hospitalization)
  Sender: FDA-Public Use
  Company Number: CERZ-1000749

PATIENT
  Age: 55 Year
  Sex: Female

DRUGS (1)
  1. CEREZYME [Suspect]
     Indication: GAUCHER'S DISEASE
     Dosage: 3600 U, Q2W, INTRAVENOUS
     Route: 042
     Dates: start: 19940301

REACTIONS (9)
  - BONE PAIN [None]
  - EYE INFECTION [None]
  - FIBULA FRACTURE [None]
  - INTERVERTEBRAL DISC INJURY [None]
  - MYALGIA [None]
  - NEPHROLITHIASIS [None]
  - SPINAL COMPRESSION FRACTURE [None]
  - TIBIA FRACTURE [None]
  - TOOTH INFECTION [None]
